FAERS Safety Report 13591281 (Version 1)
Quarter: 2017Q2

REPORT INFORMATION
  Report Type: Spontaneous
  Country: US (occurrence: US)
  Receive Date: 20170530
  Receipt Date: 20170530
  Transmission Date: 20170830
  Serious: Yes (Other)
  Sender: FDA-Public Use
  Company Number: None

PATIENT
  Age: 21 Year
  Sex: Female

DRUGS (1)
  1. STELARA [Suspect]
     Active Substance: USTEKINUMAB
     Indication: CROHN^S DISEASE
     Dosage: 90 MG EVERY 8 WEEKS SUBCUTANEOUSLY
     Route: 058
     Dates: start: 20170522

REACTIONS (4)
  - Pain [None]
  - Hypersensitivity [None]
  - Back pain [None]
  - Swollen tongue [None]

NARRATIVE: CASE EVENT DATE: 20170523
